FAERS Safety Report 4498446-9 (Version None)
Quarter: 2004Q4

REPORT INFORMATION
  Report Type: 
  Country: None (occurrence: None)
  Receive Date: 20041105
  Receipt Date: 20041027
  Transmission Date: 20050328
  Serious: Yes (Hospitalization)
  Sender: FDA-Public Use
  Company Number: 2004083498

PATIENT
  Age: 84 Year
  Sex: Female

DRUGS (1)
  1. PIROXICAM [Suspect]
     Indication: ARTHRALGIA
     Dates: end: 20040813

REACTIONS (4)
  - DUODENAL ULCER [None]
  - GASTRIC ULCER [None]
  - MELAENA [None]
  - OESOPHAGEAL ULCER [None]
